FAERS Safety Report 8999717 (Version 2)
Quarter: 2013Q1

REPORT INFORMATION
  Report Type: Spontaneous
  Country: FR (occurrence: FR)
  Receive Date: 20130102
  Receipt Date: 20130118
  Transmission Date: 20140127
  Serious: Yes (Hospitalization)
  Sender: FDA-Public Use
  Company Number: FR-GLAXOSMITHKLINE-B0855216A

PATIENT
  Age: 84 Year
  Sex: Female

DRUGS (5)
  1. ZELITREX [Suspect]
     Indication: PRODUCT USED FOR UNKNOWN INDICATION
     Dosage: 500MG TWICE PER DAY
     Route: 048
     Dates: start: 20121023, end: 20121127
  2. BACTRIM [Suspect]
     Indication: PRODUCT USED FOR UNKNOWN INDICATION
     Dosage: 1TAB TWO TIMES PER WEEK
     Route: 048
     Dates: start: 20121026, end: 20121127
  3. MABTHERA [Suspect]
     Indication: PRODUCT USED FOR UNKNOWN INDICATION
     Route: 042
     Dates: start: 20121022, end: 20121121
  4. NEULASTA [Suspect]
     Indication: PRODUCT USED FOR UNKNOWN INDICATION
     Dosage: 6MG MONTHLY
     Route: 058
     Dates: start: 20121022, end: 20121126
  5. BENDAMUSTINE [Suspect]
     Indication: PRODUCT USED FOR UNKNOWN INDICATION
     Route: 042
     Dates: start: 20121022, end: 20121121

REACTIONS (3)
  - Rash maculo-papular [Recovered/Resolved]
  - Pyrexia [Unknown]
  - Rash generalised [Recovered/Resolved]
